FAERS Safety Report 24618573 (Version 1)
Quarter: 2024Q4

REPORT INFORMATION
  Report Type: Spontaneous
  Country: US (occurrence: None)
  Receive Date: 20241114
  Receipt Date: 20241114
  Transmission Date: 20250115
  Serious: Yes (Hospitalization)
  Sender: Public
  Company Number: None

PATIENT
  Age: 71 Year
  Sex: Female
  Weight: 76 kg

DRUGS (3)
  1. CYTARABINE [Suspect]
     Active Substance: CYTARABINE
     Dates: end: 20220519
  2. SPRYCEL [Suspect]
     Active Substance: DASATINIB
     Dates: end: 20220523
  3. METHOTREXATE [Suspect]
     Active Substance: METHOTREXATE
     Dates: end: 20220517

REACTIONS (7)
  - Chills [None]
  - Pyrexia [None]
  - Platelet transfusion [None]
  - Epistaxis [None]
  - Febrile neutropenia [None]
  - Pseudomonal sepsis [None]
  - Red blood cell transfusion [None]

NARRATIVE: CASE EVENT DATE: 20220524
